FAERS Safety Report 6730008-2 (Version None)
Quarter: 2010Q2

REPORT INFORMATION
  Report Type: 
  Country: None (occurrence: None)
  Receive Date: 20100513
  Receipt Date: 20100504
  Transmission Date: 20101027
  Serious: Yes (Other)
  Sender: FDA-Public Use
  Company Number: 011263

PATIENT
  Age: 25 Year
  Sex: Male

DRUGS (4)
  1. KEPPRA [Suspect]
     Indication: MYOCLONIC EPILEPSY
     Dosage: (INTRAVENOUS (NOT OTHERWISE SPECIFIED), (1000 MG INTRAVENOUS (NOT OTHERWISE SPECIFIED)
     Route: 042
  2. SODIUM VALPROATE [Concomitant]
  3. ETHOSUXIMIDE [Concomitant]
  4. CLOBAZAM [Concomitant]

REACTIONS (6)
  - DYSKINESIA [None]
  - ENCEPHALOPATHY [None]
  - GRAND MAL CONVULSION [None]
  - MYOCLONIC EPILEPSY [None]
  - STATUS EPILEPTICUS [None]
  - TONIC CONVULSION [None]
